FAERS Safety Report 9249430 (Version 2)
Quarter: 2013Q2

REPORT INFORMATION
  Report Type: Spontaneous
  Country: US (occurrence: US)
  Receive Date: 20130423
  Receipt Date: 20130503
  Transmission Date: 20140414
  Serious: Yes (Death, Congenital Anomaly)
  Sender: FDA-Public Use
  Company Number: US-GLAXOSMITHKLINE-A1020782A

PATIENT
  Age: 0 Year
  Sex: Male

DRUGS (3)
  1. PAXIL [Suspect]
     Indication: DEPRESSION
     Route: 064
  2. PROTONIX [Concomitant]
  3. PRENATAL VITAMINS [Concomitant]

REACTIONS (7)
  - Death [Fatal]
  - Talipes [Unknown]
  - Developmental hip dysplasia [Unknown]
  - Arthropathy [Unknown]
  - Congenital central nervous system anomaly [Unknown]
  - Volvulus [Unknown]
  - Foetal exposure during pregnancy [Unknown]
